FAERS Safety Report 6409244-0 (Version None)
Quarter: 2009Q4

REPORT INFORMATION
  Report Type: 
  Country: None (occurrence: None)
  Receive Date: 20091019
  Receipt Date: 20091019
  Transmission Date: 20100525
  Serious: Yes (Other)
  Sender: FDA-Public Use
  Company Number: None

PATIENT
  Sex: Male
  Weight: 149.687 kg

DRUGS (1)
  1. REMICADE [Suspect]
     Indication: PSORIASIS
     Dosage: 5MG/KG Q 8 WEEKS IV DRIP
     Route: 041
     Dates: start: 20071201, end: 20090901

REACTIONS (2)
  - MULTIPLE SCLEROSIS [None]
  - VISUAL IMPAIRMENT [None]
